FAERS Safety Report 14054225 (Version 1)
Quarter: 2017Q4

REPORT INFORMATION
  Report Type: Report from Study
  Country: FR (occurrence: FR)
  Receive Date: 20171005
  Receipt Date: 20171005
  Transmission Date: 20180321
  Serious: Yes (Hospitalization)
  Sender: FDA-Public Use
  Company Number: FR-ROCHE-1831105

PATIENT
  Age: 57 Year
  Sex: Female

DRUGS (2)
  1. BEVACIZUMAB. [Suspect]
     Active Substance: BEVACIZUMAB
     Indication: OVARIAN CANCER
     Dosage: LAST DOSE PRIOR TO ADVERSE EVENT: 25/AUG/2016
     Route: 065
     Dates: start: 20160218, end: 20160916
  2. BLINDED OLAPARIB [Suspect]
     Active Substance: OLAPARIB
     Indication: OVARIAN CANCER
     Dosage: LAST DOSE PRIOR TO ADVERSE EVENT: 12/SEP/2016
     Route: 048
     Dates: start: 20160219

REACTIONS (1)
  - Diaphragmatic hernia [Recovered/Resolved]

NARRATIVE: CASE EVENT DATE: 20160913
